FAERS Safety Report 16771679 (Version 1)
Quarter: 2019Q3

REPORT INFORMATION
  Report Type: Spontaneous
  Country: US (occurrence: US)
  Receive Date: 20190904
  Receipt Date: 20190904
  Transmission Date: 20191005
  Serious: No
  Sender: FDA-Public Use
  Company Number: US-009507513-1908USA005527

PATIENT
  Age: 51 Year
  Sex: Female

DRUGS (11)
  1. MINOXIDIL. [Concomitant]
     Active Substance: MINOXIDIL
     Indication: ALOPECIA UNIVERSALIS
  2. DIPROLENE [Suspect]
     Active Substance: BETAMETHASONE DIPROPIONATE
     Indication: DERMATITIS ATOPIC
     Dosage: UNK
  3. DUPILUMAB [Concomitant]
     Active Substance: DUPILUMAB
     Dosage: UNK, ONCE
  4. DUPILUMAB [Concomitant]
     Active Substance: DUPILUMAB
     Dosage: UNK, QM
  5. IRON (UNSPECIFIED) [Concomitant]
     Active Substance: IRON
     Indication: DIFFUSE ALOPECIA
  6. VITAMIN D (UNSPECIFIED) [Concomitant]
     Active Substance: VITAMIN D NOS
     Indication: ROUTINE HEALTH MAINTENANCE
     Dosage: UNK
  7. ZOCOR [Suspect]
     Active Substance: SIMVASTATIN
     Indication: ALOPECIA AREATA
     Dosage: UNK
  8. DUPILUMAB [Concomitant]
     Active Substance: DUPILUMAB
     Dosage: UNK, ONCE
  9. IRON (UNSPECIFIED) [Concomitant]
     Active Substance: IRON
     Indication: IRON DEFICIENCY
  10. ZETIA [Suspect]
     Active Substance: EZETIMIBE
     Indication: ALOPECIA AREATA
     Dosage: UNK
  11. DUPILUMAB [Concomitant]
     Active Substance: DUPILUMAB
     Indication: DERMATITIS ATOPIC
     Dosage: 300 MILLIGRAM, EVERY 2 WEEKS

REACTIONS (2)
  - Drug ineffective [Unknown]
  - Product use in unapproved indication [Unknown]
